FAERS Safety Report 17046301 (Version 1)
Quarter: 2019Q4

REPORT INFORMATION
  Report Type: Spontaneous
  Country: GB (occurrence: GB)
  Receive Date: 20191119
  Receipt Date: 20191119
  Transmission Date: 20200122
  Serious: Yes (Other)
  Sender: FDA-Public Use
  Company Number: GB-TEVA-2019-GB-1138942

PATIENT
  Age: 65 Year
  Sex: Female
  Weight: 53.97 kg

DRUGS (2)
  1. METRONIDAZOLE. [Suspect]
     Active Substance: METRONIDAZOLE
     Indication: DIVERTICULAR PERFORATION
     Dosage: 1200MG/ DAY
     Route: 065
     Dates: start: 20180724, end: 20180725
  2. STEMETIL [Concomitant]
     Active Substance: PROCHLORPERAZINE
     Dosage: 5MG

REACTIONS (2)
  - Nausea [Unknown]
  - Haematemesis [Recovered/Resolved]

NARRATIVE: CASE EVENT DATE: 20180724
